FAERS Safety Report 4452108-2 (Version None)
Quarter: 2004Q3

REPORT INFORMATION
  Report Type: 
  Country: None (occurrence: None)
  Receive Date: 20040916
  Receipt Date: 20040824
  Transmission Date: 20050211
  Serious: Yes (Other)
  Sender: FDA-Public Use
  Company Number: PHBS2004JP11106

PATIENT
  Age: 78 Year
  Sex: Female

DRUGS (2)
  1. TEGRETOL [Suspect]
     Indication: FACIAL NERVE DISORDER
     Dosage: 200 MG/DAY
     Route: 048
     Dates: start: 20040810, end: 20040821
  2. TEGRETOL [Suspect]
     Dosage: 1 DF, QD
     Route: 048
     Dates: start: 20040821, end: 20040824

REACTIONS (6)
  - DIZZINESS [None]
  - DRUG ERUPTION [None]
  - INFECTION [None]
  - PHARYNGOLARYNGEAL PAIN [None]
  - PYREXIA [None]
  - URINARY OCCULT BLOOD POSITIVE [None]
